FAERS Safety Report 6065702-2 (Version None)
Quarter: 2009Q1

REPORT INFORMATION
  Report Type: 
  Country: None (occurrence: None)
  Receive Date: 20090130
  Receipt Date: 20090122
  Transmission Date: 20090719
  Serious: Yes (Death, Other)
  Sender: FDA-Public Use
  Company Number: ES-2009-0082

PATIENT
  Age: 83 Year
  Sex: Female
  Weight: 80 kg

DRUGS (1)
  1. NAVELBINE [Suspect]
     Indication: NON-SMALL CELL LUNG CANCER
     Dosage: 370 MG IV
     Route: 042
     Dates: start: 20090113, end: 20090113

REACTIONS (18)
  - ACCIDENTAL OVERDOSE [None]
  - ANURIA [None]
  - ARTHRALGIA [None]
  - BLOOD POTASSIUM INCREASED [None]
  - BRADYCARDIA [None]
  - CARDIAC ARREST [None]
  - DIARRHOEA [None]
  - HEADACHE [None]
  - LUNG INFILTRATION [None]
  - METABOLIC ACIDOSIS [None]
  - MYALGIA [None]
  - NAUSEA [None]
  - PLATELET COUNT DECREASED [None]
  - PLEURAL EFFUSION [None]
  - PYREXIA [None]
  - RESPIRATORY DISTRESS [None]
  - TACHYARRHYTHMIA [None]
  - VOMITING [None]
